FAERS Safety Report 7063274-7 (Version None)
Quarter: 2010Q4

REPORT INFORMATION
  Report Type: 
  Country: None (occurrence: None)
  Receive Date: 20101026
  Receipt Date: 20100602
  Transmission Date: 20110411
  Serious: No
  Sender: FDA-Public Use
  Company Number: US-PFIZER INC-2010069223

PATIENT
  Sex: Female

DRUGS (5)
  1. LIPITOR [Suspect]
     Dosage: 20 MG, 1X/DAY
     Dates: start: 20090101, end: 20090201
  2. ZETIA [Concomitant]
     Dosage: 10 MG, 1X/DAY
     Dates: start: 20090201
  3. ALENDRONATE SODIUM [Concomitant]
     Dosage: 70 MG, 1X/DAY
     Dates: start: 20081201
  4. ACETYLSALICYLIC ACID [Concomitant]
     Dosage: UNK
     Dates: start: 20081201
  5. CALCIUM [Concomitant]
     Dosage: UNK
     Dates: start: 20081201

REACTIONS (1)
  - MYALGIA [None]
